FAERS Safety Report 17220784 (Version 1)
Quarter: 2019Q4

REPORT INFORMATION
  Report Type: Report from Study
  Country: BR (occurrence: BR)
  Receive Date: 20191231
  Receipt Date: 20191231
  Transmission Date: 20200122
  Serious: Yes (Other)
  Sender: FDA-Public Use
  Company Number: BR-JNJFOC-20191244490

PATIENT
  Age: 45 Year
  Sex: Female

DRUGS (1)
  1. BIO-MANGUINHOS INFLIXIMABE [Suspect]
     Active Substance: INFLIXIMAB
     Indication: ANKYLOSING SPONDYLITIS
     Route: 042
     Dates: start: 201902, end: 20191217

REACTIONS (3)
  - Bronchospasm [Unknown]
  - Pain in extremity [Unknown]
  - Abdominal pain [Unknown]

NARRATIVE: CASE EVENT DATE: 20191217
